FAERS Safety Report 5038892-8 (Version None)
Quarter: 2006Q2

REPORT INFORMATION
  Report Type: 
  Country: None (occurrence: None)
  Receive Date: 20060629
  Receipt Date: 20060620
  Transmission Date: 20061013
  Serious: Yes (Death, Other)
  Sender: FDA-Public Use
  Company Number: US-AVENTIS-200615353US

PATIENT
  Sex: Female
  Weight: 50 kg

DRUGS (2)
  1. AMARYL [Suspect]
     Dates: start: 20060318
  2. REMINYL [Suspect]

REACTIONS (8)
  - ASTHENIA [None]
  - BRAIN DEATH [None]
  - FALL [None]
  - HYPOGLYCAEMIA [None]
  - HYPOGLYCAEMIC COMA [None]
  - INCORRECT DOSE ADMINISTERED [None]
  - LOSS OF CONSCIOUSNESS [None]
  - MEDICATION ERROR [None]
